FAERS Safety Report 15858638 (Version 1)
Quarter: 2019Q1

REPORT INFORMATION
  Report Type: Spontaneous
  Country: FR (occurrence: FR)
  Receive Date: 20190123
  Receipt Date: 20190123
  Transmission Date: 20190417
  Serious: Yes (Other)
  Sender: FDA-Public Use
  Company Number: FR-ELI_LILLY_AND_COMPANY-FR201901006387

PATIENT
  Age: 58 Year
  Sex: Male

DRUGS (19)
  1. TRANXENE [Interacting]
     Active Substance: CLORAZEPATE DIPOTASSIUM
     Dosage: 1 DF, DAILY
     Route: 048
  2. LEPTICUR [Interacting]
     Active Substance: TROPATEPINE HYDROCHLORIDE
     Indication: KORSAKOFF^S SYNDROME
     Dosage: 1 DF, DAILY
     Route: 048
  3. ZYPREXA [Suspect]
     Active Substance: OLANZAPINE
     Indication: KORSAKOFF^S SYNDROME
     Dosage: 1 DF, DAILY
     Route: 048
  4. THERALENE [Interacting]
     Active Substance: TRIMEPRAZINE
     Indication: INSOMNIA
     Dosage: 1 DF, DAILY
     Route: 048
  5. ZYPREXA [Interacting]
     Active Substance: OLANZAPINE
     Dosage: 1 DF, DAILY
     Route: 048
  6. THERALENE [Interacting]
     Active Substance: TRIMEPRAZINE
     Dosage: 1 DF, DAILY
     Route: 048
  7. DUPHALAC EASY [Concomitant]
     Indication: PRODUCT USED FOR UNKNOWN INDICATION
     Dosage: UNK UNK, UNKNOWN
     Route: 065
  8. LEPTICUR [Interacting]
     Active Substance: TROPATEPINE HYDROCHLORIDE
     Dosage: 3 DF, DAILY
     Route: 048
  9. GLYCERINE [Concomitant]
     Active Substance: GLYCERIN
     Indication: PRODUCT USED FOR UNKNOWN INDICATION
     Dosage: UNK, UNKNOWN
     Route: 065
  10. ALFUZOSIN HYDROCHLORIDE. [Concomitant]
     Active Substance: ALFUZOSIN HYDROCHLORIDE
     Indication: PRODUCT USED FOR UNKNOWN INDICATION
     Dosage: UNK UNK, UNKNOWN
     Route: 065
  11. NORMACOL ANTISPASMODIC [Concomitant]
     Indication: PRODUCT USED FOR UNKNOWN INDICATION
     Dosage: UNK UNK, UNKNOWN
     Route: 065
  12. SKENAN [Interacting]
     Active Substance: MORPHINE SULFATE
     Indication: ORAL PAIN
     Dosage: 4 DF, DAILY
     Route: 048
     Dates: start: 20181001, end: 20181007
  13. LOXAPEC [Interacting]
     Active Substance: LOXAPINE SUCCINATE
     Indication: KORSAKOFF^S SYNDROME
     Dosage: 3 DF, DAILY
     Route: 048
  14. ACTISKENAN [Interacting]
     Active Substance: MORPHINE SULFATE
     Indication: ORAL PAIN
     Dosage: 4 DF, DAILY
     Route: 048
     Dates: start: 20181001, end: 20181007
  15. TRANXENE [Interacting]
     Active Substance: CLORAZEPATE DIPOTASSIUM
     Indication: PSYCHIATRIC DISORDER PROPHYLAXIS
     Dosage: 3 DF, DAILY
     Route: 048
  16. HALOPERIDOL. [Interacting]
     Active Substance: HALOPERIDOL
     Indication: KORSAKOFF^S SYNDROME
     Dosage: 3 DF, DAILY
     Route: 048
  17. LOXAPEC [Interacting]
     Active Substance: LOXAPINE SUCCINATE
     Dosage: 1 DF, DAILY
     Route: 048
  18. HYDROXYZINE HYDROCHLORIDE. [Interacting]
     Active Substance: HYDROXYZINE HYDROCHLORIDE
     Indication: KORSAKOFF^S SYNDROME
     Dosage: 1 DF, DAILY
     Route: 048
  19. HYDROXYZINE HYDROCHLORIDE. [Interacting]
     Active Substance: HYDROXYZINE HYDROCHLORIDE
     Dosage: 3 DF, DAILY
     Route: 048

REACTIONS (6)
  - Drug interaction [Recovered/Resolved]
  - Urinary retention [Recovered/Resolved]
  - Catatonia [Recovered/Resolved]
  - Off label use [Unknown]
  - Subileus [Recovered/Resolved]
  - Dyspnoea [Recovered/Resolved]

NARRATIVE: CASE EVENT DATE: 20181001
